FAERS Safety Report 15632382 (Version 1)
Quarter: 2018Q4

REPORT INFORMATION
  Report Type: Spontaneous
  Country: US (occurrence: US)
  Receive Date: 20181119
  Receipt Date: 20181119
  Transmission Date: 20190205
  Serious: No
  Sender: FDA-Public Use
  Company Number: US-AMGEN-USASP2018161790

PATIENT
  Age: 63 Year
  Sex: Female

DRUGS (1)
  1. PROLIA [Suspect]
     Active Substance: DENOSUMAB
     Indication: OSTEOPOROSIS POSTMENOPAUSAL
     Dosage: 60 MG, Q6MO
     Route: 065
     Dates: start: 20180808

REACTIONS (12)
  - Abdominal pain upper [Unknown]
  - Pyrexia [Unknown]
  - Paraesthesia [Unknown]
  - Pruritus [Unknown]
  - Dry skin [Unknown]
  - Hypoaesthesia [Unknown]
  - Parosmia [Unknown]
  - Nausea [Unknown]
  - Pain [Unknown]
  - Back pain [Unknown]
  - Hyperhidrosis [Unknown]
  - Chills [Unknown]

NARRATIVE: CASE EVENT DATE: 201810
